FAERS Safety Report 4828433-X (Version None)
Quarter: 2005Q4

REPORT INFORMATION
  Report Type: 
  Country: None (occurrence: None)
  Receive Date: 20051014
  Receipt Date: 20050616
  Transmission Date: 20060501
  Serious: No
  Sender: FDA-Public Use
  Company Number: 2005SP001082

PATIENT
  Age: 52 Year
  Sex: Female

DRUGS (6)
  1. LUNESTA [Suspect]
     Indication: SLEEP APNOEA SYNDROME
     Dosage: SEE IMAGE
     Route: 048
     Dates: start: 20050401, end: 20050101
  2. LUNESTA [Suspect]
     Indication: SLEEP APNOEA SYNDROME
     Dosage: SEE IMAGE
     Route: 048
     Dates: start: 20050101
  3. SYNTHROID [Concomitant]
  4. PRAVACHOL [Concomitant]
  5. ALLEGRA [Concomitant]
  6. ESTRADIOL INJ [Concomitant]

REACTIONS (1)
  - DYSGEUSIA [None]
